FAERS Safety Report 5397529-9 (Version None)
Quarter: 2007Q3

REPORT INFORMATION
  Report Type: 
  Country: None (occurrence: None)
  Receive Date: 20070726
  Receipt Date: 20070717
  Transmission Date: 20080115
  Serious: Yes (Death, Other)
  Sender: FDA-Public Use
  Company Number: NL-BAYER-200714164GDS

PATIENT
  Age: 48 Year
  Sex: Male

DRUGS (3)
  1. ASPIRIN [Interacting]
     Indication: MYOCARDIAL INFARCTION
     Route: 065
  2. CLOPIDOGREL [Interacting]
     Indication: MYOCARDIAL INFARCTION
     Route: 065
  3. TIROFIBAN [Suspect]
     Indication: MYOCARDIAL INFARCTION
     Route: 065

REACTIONS (3)
  - CARDIOGENIC SHOCK [None]
  - MYOCARDIAL INFARCTION [None]
  - RECTAL HAEMORRHAGE [None]
